FAERS Safety Report 4459407-9 (Version None)
Quarter: 2004Q3

REPORT INFORMATION
  Report Type: 
  Country: None (occurrence: None)
  Receive Date: 20040927
  Receipt Date: 20040922
  Transmission Date: 20050211
  Serious: Yes (Other)
  Sender: FDA-Public Use
  Company Number: US-GLAXOSMITHKLINE-A0526854A

PATIENT
  Age: 58 Year
  Sex: Female

DRUGS (6)
  1. WELLBUTRIN [Suspect]
     Indication: DEPRESSION
     Dates: start: 20020101
  2. WELLBUTRIN [Suspect]
     Dosage: 300MG PER DAY
     Route: 048
  3. ETHAMBUTOL HCL [Suspect]
     Indication: TUBERCULOSIS
  4. ISONIAZID [Suspect]
     Indication: TUBERCULOSIS
  5. PYRAZINAMIDE [Suspect]
     Indication: TUBERCULOSIS
  6. VITAMIN B6 [Concomitant]

REACTIONS (2)
  - LUNG NEOPLASM [None]
  - RASH [None]
